FAERS Safety Report 16956624 (Version 1)
Quarter: 2019Q4

REPORT INFORMATION
  Report Type: Report from Study
  Country: FR (occurrence: FR)
  Receive Date: 20191024
  Receipt Date: 20191024
  Transmission Date: 20200122
  Serious: Yes (Other)
  Sender: FDA-Public Use
  Company Number: FR-MYLANLABS-2019M1099937

PATIENT
  Sex: Male

DRUGS (2)
  1. ATROPINE. [Suspect]
     Active Substance: ATROPINE
     Indication: PREMEDICATION
     Dosage: IN WHARTON^S JELLY
     Route: 042
  2. REMIFENTANIL [Suspect]
     Active Substance: REMIFENTANIL
     Indication: ANALGESIC THERAPY
     Dosage: IN WHARTON^S JELLY
     Route: 042

REACTIONS (2)
  - Wrong technique in product usage process [Unknown]
  - Injection site vesicles [Unknown]
